FAERS Safety Report 16390116 (Version 1)
Quarter: 2019Q2

REPORT INFORMATION
  Report Type: Spontaneous
  Country: GB (occurrence: GB)
  Receive Date: 20190604
  Receipt Date: 20190604
  Transmission Date: 20190711
  Serious: Yes (Other)
  Sender: FDA-Public Use
  Company Number: GB-SAMSUNG BIOEPIS-SB-2019-12832

PATIENT
  Age: 4 Month
  Sex: Female

DRUGS (19)
  1. FLUDARABINE [Suspect]
     Active Substance: FLUDARABINE PHOSPHATE
     Dosage: SECOND TRANSPLANT: AGE 18 MONTHS
     Route: 065
     Dates: start: 2013
  2. TREOSULFAN [Suspect]
     Active Substance: TREOSULFAN
     Dosage: 36G/M2: SECOND TRANSPLANT: AGE 18 MONTHS
     Route: 065
     Dates: start: 2013
  3. MYCOPHENOLATE MOFETIL. [Suspect]
     Active Substance: MYCOPHENOLATE MOFETIL
     Indication: PROPHYLAXIS AGAINST GRAFT VERSUS HOST DISEASE
     Dosage: DURING 1ST TRANSPLANTATION, UNKNOWN
     Route: 065
  4. MYCOPHENOLATE MOFETIL. [Suspect]
     Active Substance: MYCOPHENOLATE MOFETIL
     Dosage: DURING 2ND TRANSPLANTATION, UNKNOWN
     Route: 065
     Dates: start: 2013
  5. CICLOSPORIN A [Suspect]
     Active Substance: CYCLOSPORINE
     Indication: PROPHYLAXIS AGAINST GRAFT VERSUS HOST DISEASE
     Dosage: UNKNOWN
     Route: 065
  6. INFLIXIMAB [Suspect]
     Active Substance: INFLIXIMAB
     Indication: IMMUNOSUPPRESSANT DRUG THERAPY
     Dosage: DURING 1ST TRANSPLANTATION, UNKNOWN
     Route: 065
  7. THIOTEPA. [Suspect]
     Active Substance: THIOTEPA
     Indication: IMMUNOSUPPRESSANT DRUG THERAPY
     Dosage: SECOND TRANSPLANT: AGE 18 MONTHS
     Route: 065
     Dates: start: 2013
  8. ALEMTUZUMAB [Suspect]
     Active Substance: ALEMTUZUMAB
     Indication: IMMUNOSUPPRESSANT DRUG THERAPY
     Dosage: SECOND TRANSPLANT: AGE 18 MONTHS
     Route: 065
     Dates: start: 2013
  9. ALEMTUZUMAB [Suspect]
     Active Substance: ALEMTUZUMAB
     Dosage: LOW DOSE, FIRST TRANSPLANT: AGE 7 MONTHS
     Route: 065
  10. CIDOFOVIR. [Suspect]
     Active Substance: CIDOFOVIR
     Indication: IMMUNOSUPPRESSANT DRUG THERAPY
     Dosage: UNKNOWN
     Route: 065
  11. HYDROCORTISONE. [Concomitant]
     Active Substance: HYDROCORTISONE
     Indication: IMMUNOSUPPRESSANT DRUG THERAPY
     Route: 065
     Dates: start: 201509, end: 201510
  12. METHYLPREDNISOLONE. [Suspect]
     Active Substance: METHYLPREDNISOLONE
     Dosage: DOSE AT THE TIME OF FIRST TRANSPLANT (AGE OF 18 MONTHS), UNKNOWN
     Route: 065
     Dates: end: 2015
  13. BCG [Suspect]
     Active Substance: BCG VACCINE
     Indication: IMMUNISATION
     Dosage: UNKNOWN
     Route: 065
  14. TREOSULFAN [Suspect]
     Active Substance: TREOSULFAN
     Indication: IMMUNOSUPPRESSANT DRUG THERAPY
     Dosage: 36G/M2: FIRST TRANSPLANT: AGE 7 MONTHS
     Route: 065
  15. TACROLIMUS. [Suspect]
     Active Substance: TACROLIMUS
     Indication: PROPHYLAXIS AGAINST GRAFT VERSUS HOST DISEASE
     Dosage: UNKNOWN
     Route: 065
     Dates: start: 2013
  16. FLUDARABINE [Suspect]
     Active Substance: FLUDARABINE PHOSPHATE
     Indication: IMMUNOSUPPRESSANT DRUG THERAPY
     Dosage: FIRST TRANSPLANT: AGE 7 MONTHS
     Route: 065
  17. METHYLPREDNISOLONE. [Suspect]
     Active Substance: METHYLPREDNISOLONE
     Indication: IMMUNOSUPPRESSANT DRUG THERAPY
     Dosage: DOSE AT THE TIME OF FIRST TRANSPLANT (AGE OF 7 MONTHS)
     Route: 065
  18. INFLIXIMAB [Suspect]
     Active Substance: INFLIXIMAB
     Dosage: DURING 2ND TRANSPLANTATION, UNKNOWN
     Route: 065
  19. ANTITHYMOCYTE GLOBULIN [Suspect]
     Active Substance: THYMOCYTE IMMUNE GLOBULIN NOS
     Indication: IMMUNOSUPPRESSANT DRUG THERAPY
     Dosage: UNKNOWN
     Route: 065

REACTIONS (10)
  - Off label use [Unknown]
  - Adenovirus infection [Recovered/Resolved]
  - Vaccination site inflammation [Unknown]
  - Hypertension [Unknown]
  - Product use issue [Unknown]
  - Immune reconstitution inflammatory syndrome [Unknown]
  - Thrombotic microangiopathy [Unknown]
  - Gastroenteritis norovirus [Recovered/Resolved]
  - Lymphadenopathy [Unknown]
  - Product use in unapproved indication [Unknown]
